FAERS Safety Report 4715418-7 (Version None)
Quarter: 2005Q3

REPORT INFORMATION
  Report Type: 
  Country: None (occurrence: None)
  Receive Date: 20050715
  Receipt Date: 20050715
  Transmission Date: 20060218
  Serious: No
  Sender: FDA-Public Use
  Company Number: None

PATIENT
  Sex: Female
  Weight: 73.0291 kg

DRUGS (6)
  1. HUMIRA [Suspect]
     Indication: RHEUMATOID ARTHRITIS
     Dates: start: 20030601
  2. METHOTREXATE [Concomitant]
  3. FLONASE [Concomitant]
  4. PREDNISONE [Concomitant]
  5. LEVOXYL [Concomitant]
  6. PLAQUENIL [Concomitant]

REACTIONS (3)
  - B-CELL LYMPHOMA [None]
  - RENAL FAILURE ACUTE [None]
  - RETROPERITONEAL NEOPLASM [None]
